FAERS Safety Report 7485786-4 (Version None)
Quarter: 2011Q2

REPORT INFORMATION
  Report Type: 
  Country: None (occurrence: None)
  Receive Date: 20110517
  Receipt Date: 20110210
  Transmission Date: 20111010
  Serious: Yes (Hospitalization)
  Sender: FDA-Public Use
  Company Number: IT-BAYER-2011-013947

PATIENT
  Age: 32 Year
  Sex: Female

DRUGS (1)
  1. ASPIRIN [Suspect]
     Indication: PAIN
     Dosage: 500 MG, ONCE
     Route: 048
     Dates: start: 20110204, end: 20110204

REACTIONS (2)
  - RASH ERYTHEMATOUS [None]
  - HYPOTENSION [None]
